FAERS Safety Report 4279237-0 (Version None)
Quarter: 2004Q1

REPORT INFORMATION
  Report Type: 
  Country: None (occurrence: None)
  Receive Date: 20040126
  Receipt Date: 20040126
  Transmission Date: 20041129
  Serious: Yes (Death)
  Sender: FDA-Public Use
  Company Number: None

PATIENT
  Sex: Female
  Weight: 65.3 kg

DRUGS (7)
  1. BUSPIRONE HCL [Suspect]
     Indication: DYSPNOEA
     Dosage: 10MG PO QD
     Route: 048
     Dates: start: 20040115, end: 20040115
  2. LORAZEPAM [Concomitant]
  3. COMPAZINE [Concomitant]
  4. CIPRO [Concomitant]
  5. PEPCID [Concomitant]
  6. VINORELBINE [Concomitant]
  7. ENBREL/PLACEBO [Concomitant]

REACTIONS (1)
  - DYSPNOEA EXACERBATED [None]
